FAERS Safety Report 24461646 (Version 1)
Quarter: 2024Q4

REPORT INFORMATION
  Report Type: Report from Study
  Country: BE (occurrence: BE)
  Receive Date: 20241018
  Receipt Date: 20241018
  Transmission Date: 20250115
  Serious: No
  Sender: ROCHE
  Company Number: BE-ROCHE-3565078

PATIENT
  Age: 82 Year
  Sex: Female

DRUGS (2)
  1. RITUXIMAB [Suspect]
     Active Substance: RITUXIMAB
     Indication: Lichen planus pemphigoides
     Route: 065
  2. DAPSONE [Concomitant]
     Active Substance: DAPSONE

REACTIONS (2)
  - Off label use [Unknown]
  - No adverse event [Unknown]
